FAERS Safety Report 17991896 (Version 2)
Quarter: 2020Q3

REPORT INFORMATION
  Report Type: Spontaneous
  Country: US (occurrence: US)
  Receive Date: 20200708
  Receipt Date: 20200922
  Transmission Date: 20201103
  Serious: Yes (Other)
  Sender: FDA-Public Use
  Company Number: US-ABBVIE-20K-163-3468496-00

PATIENT
  Age: 61 Year
  Sex: Male

DRUGS (1)
  1. MAVYRET [Suspect]
     Active Substance: GLECAPREVIR\PIBRENTASVIR
     Indication: CHRONIC HEPATITIS C
     Route: 048
     Dates: start: 202004, end: 2020

REACTIONS (11)
  - Epidermal necrosis [Recovering/Resolving]
  - Scrotal pain [Not Recovered/Not Resolved]
  - Skin lesion [Recovering/Resolving]
  - Skin discolouration [Recovering/Resolving]
  - Penile ulceration [Recovered/Resolved]
  - Genital erythema [Not Recovered/Not Resolved]
  - Penile pain [Not Recovered/Not Resolved]
  - Staphylococcal infection [Not Recovered/Not Resolved]
  - Scrotal ulcer [Unknown]
  - Fixed eruption [Not Recovered/Not Resolved]
  - Rash [Recovered/Resolved]

NARRATIVE: CASE EVENT DATE: 2020
